FAERS Safety Report 14934117 (Version 2)
Quarter: 2018Q2

REPORT INFORMATION
  Report Type: Spontaneous
  Country: FR (occurrence: FR)
  Receive Date: 20180524
  Receipt Date: 20180615
  Transmission Date: 20180711
  Serious: Yes (Hospitalization, Other)
  Sender: FDA-Public Use
  Company Number: FR-JNJFOC-20180526563

PATIENT
  Age: 41 Year
  Sex: Female
  Weight: 45 kg

DRUGS (7)
  1. ETOPOSIDE. [Suspect]
     Active Substance: ETOPOSIDE
     Indication: HODGKIN^S DISEASE STAGE IV
     Route: 042
     Dates: start: 20171205, end: 20171205
  2. DOXORUBICIN HYDROCHLORIDE. [Suspect]
     Active Substance: DOXORUBICIN HYDROCHLORIDE
     Indication: HODGKIN^S DISEASE STAGE IV
     Route: 042
     Dates: start: 20171205, end: 20171205
  3. PROCARBAZINE [Suspect]
     Active Substance: PROCARBAZINE
     Indication: HODGKIN^S DISEASE STAGE IV
     Route: 048
     Dates: start: 20171205, end: 20171211
  4. PREDNISONE. [Suspect]
     Active Substance: PREDNISONE
     Indication: HODGKIN^S DISEASE STAGE IV
     Route: 048
     Dates: start: 20171205, end: 20171219
  5. CYCLOPHOSPHAMIDE. [Suspect]
     Active Substance: CYCLOPHOSPHAMIDE
     Indication: HODGKIN^S DISEASE STAGE IV
     Route: 042
     Dates: start: 20171205, end: 20171205
  6. VINCRISTINE SULFATE. [Suspect]
     Active Substance: VINCRISTINE SULFATE
     Indication: HODGKIN^S DISEASE STAGE IV
     Route: 042
     Dates: start: 20171212, end: 20171212
  7. BLEOMYCINE [Suspect]
     Active Substance: BLEOMYCIN SULFATE
     Indication: HODGKIN^S DISEASE STAGE IV
     Route: 042
     Dates: start: 20171212, end: 20171212

REACTIONS (6)
  - Aplasia [Recovered/Resolved]
  - Off label use [Unknown]
  - Product use in unapproved indication [Unknown]
  - Histiocytosis haematophagic [Recovered/Resolved]
  - Cytomegalovirus infection [Recovered/Resolved]
  - Lung disorder [Recovered/Resolved]

NARRATIVE: CASE EVENT DATE: 20171205
